FAERS Safety Report 9571509 (Version 1)
Quarter: 2013Q4

REPORT INFORMATION
  Report Type: Spontaneous
  Country: US (occurrence: US)
  Receive Date: 20131001
  Receipt Date: 20131001
  Transmission Date: 20140711
  Serious: No
  Sender: FDA-Public Use
  Company Number: US-PFIZER INC-2013278768

PATIENT
  Sex: 0

DRUGS (2)
  1. LYRICA [Suspect]
     Dosage: 75 MG, BID
  2. LYRICA [Suspect]
     Dosage: 100 MG, BID

REACTIONS (1)
  - Oropharyngeal pain [Unknown]
